FAERS Safety Report 8332617-6 (Version None)
Quarter: 2012Q2

REPORT INFORMATION
  Report Type: 
  Country: None (occurrence: None)
  Receive Date: 20120503
  Receipt Date: 20120418
  Transmission Date: 20120825
  Serious: Yes (Other)
  Sender: FDA-Public Use
  Company Number: CN-JNJFOC-20120501296

PATIENT
  Sex: Male
  Weight: 80 kg

DRUGS (2)
  1. SIBELIUM [Suspect]
     Route: 048
     Dates: end: 20110614
  2. SIBELIUM [Suspect]
     Indication: TINEA VERSICOLOUR
     Route: 048
     Dates: start: 20110612, end: 20110613

REACTIONS (1)
  - BACK PAIN [None]
